FAERS Safety Report 9231642 (Version 1)
Quarter: 2013Q2

REPORT INFORMATION
  Report Type: Spontaneous
  Country: AU (occurrence: AU)
  Receive Date: 20130415
  Receipt Date: 20130415
  Transmission Date: 20140414
  Serious: Yes (Hospitalization)
  Sender: FDA-Public Use
  Company Number: AU-ASTRAZENECA-2013SE22993

PATIENT
  Age: 53 Year
  Sex: Female

DRUGS (5)
  1. QUETIAPINE [Suspect]
     Route: 048
  2. QUETIAPINE [Suspect]
     Route: 048
  3. SODIUM VALPROATE [Suspect]
     Route: 065
  4. SODIUM VALPROATE [Suspect]
     Route: 065
  5. THYROXINE SODIUM [Concomitant]

REACTIONS (8)
  - Overdose [Unknown]
  - Agitation [Unknown]
  - Disorientation [Unknown]
  - Hyperammonaemic encephalopathy [Unknown]
  - Confusional state [Unknown]
  - Confusional state [Unknown]
  - Ammonia increased [Unknown]
  - Hostility [Unknown]
